FAERS Safety Report 24149892 (Version 3)
Quarter: 2025Q1

REPORT INFORMATION
  Report Type: Report from Study
  Country: US (occurrence: US)
  Receive Date: 20240730
  Receipt Date: 20250128
  Transmission Date: 20250409
  Serious: Yes (Hospitalization)
  Sender: ROCHE
  Company Number: US-ROCHE-10000031745

PATIENT
  Age: 35 Year
  Sex: Female
  Weight: 113.85 kg

DRUGS (2)
  1. OCREVUS [Suspect]
     Active Substance: OCRELIZUMAB
     Indication: Relapsing-remitting multiple sclerosis
     Dosage: ONGOING YES?DATE OF TREATMENTS : 23-OCT-2023, 10-JUN-2024, 09-DEC-2024,
     Route: 040
     Dates: start: 202310
  2. ACRIVASTINE [Suspect]
     Active Substance: ACRIVASTINE
     Indication: Product used for unknown indication
     Route: 065

REACTIONS (21)
  - Uterine mass [Recovered/Resolved]
  - Multiple sclerosis pseudo relapse [Not Recovered/Not Resolved]
  - Therapeutic response shortened [Unknown]
  - Hypoaesthesia [Unknown]
  - Pain [Unknown]
  - Asthenia [Unknown]
  - Abscess [Recovered/Resolved]
  - Multiple sclerosis relapse [Unknown]
  - Weight increased [Not Recovered/Not Resolved]
  - Throat tightness [Recovered/Resolved]
  - Paraesthesia [Recovered/Resolved]
  - Tinnitus [Recovered/Resolved]
  - Hypersensitivity [Unknown]
  - Throat irritation [Unknown]
  - Fatigue [Unknown]
  - Erythema [Unknown]
  - Dyspnoea [Unknown]
  - Malaise [Unknown]
  - Peripheral swelling [Unknown]
  - Paraesthesia [Unknown]
  - Multiple sclerosis [Unknown]

NARRATIVE: CASE EVENT DATE: 20240101
